FAERS Safety Report 5595725-9 (Version None)
Quarter: 2008Q1

REPORT INFORMATION
  Report Type: 
  Country: None (occurrence: None)
  Receive Date: 20080118
  Receipt Date: 20080117
  Transmission Date: 20080703
  Serious: Yes (Hospitalization)
  Sender: FDA-Public Use
  Company Number: A0685488A

PATIENT
  Age: 61 Year
  Sex: Female

DRUGS (1)
  1. ALLI [Suspect]
     Route: 048
     Dates: start: 20070101, end: 20070916

REACTIONS (5)
  - CHOLECYSTITIS [None]
  - GALLBLADDER OPERATION [None]
  - MALAISE [None]
  - PAIN [None]
  - VOMITING [None]
